FAERS Safety Report 21307445 (Version 3)
Quarter: 2022Q4

REPORT INFORMATION
  Report Type: Report from Study
  Country: CN (occurrence: CN)
  Receive Date: 20220908
  Receipt Date: 20221014
  Transmission Date: 20230112
  Serious: Yes (Life-Threatening)
  Sender: FDA-Public Use
  Company Number: CN-DSRSG-DS8201AU305_23045006_000001

PATIENT
  Age: 41 Year
  Sex: Female
  Weight: 55.3 kg

DRUGS (9)
  1. FAM-TRASTUZUMAB DERUXTECAN-NXKI [Suspect]
     Active Substance: FAM-TRASTUZUMAB DERUXTECAN-NXKI
     Indication: HER2 positive breast cancer
     Dosage: 297 MG
     Route: 042
     Dates: start: 20220824, end: 20220824
  2. FAM-TRASTUZUMAB DERUXTECAN-NXKI [Suspect]
     Active Substance: FAM-TRASTUZUMAB DERUXTECAN-NXKI
     Dosage: 244.2 MG
     Route: 042
     Dates: start: 20220921, end: 20220921
  3. DIPHENHYDRAMINE HYDROCHLORIDE [Concomitant]
     Active Substance: DIPHENHYDRAMINE HYDROCHLORIDE
     Dosage: 20 MILLIGRAM
     Route: 030
     Dates: start: 20220824, end: 20220824
  4. DEXAMETHASONE SODIUM PHOSPHATE [Concomitant]
     Active Substance: DEXAMETHASONE SODIUM PHOSPHATE
     Dosage: 5 MILLIGRAM
     Route: 042
     Dates: start: 20220824, end: 20220824
  5. GLYCYRRHIZIN [Concomitant]
     Active Substance: GLYCYRRHIZIN
     Indication: Aspartate aminotransferase increased
     Dosage: 50 MILLIGRAM
     Route: 048
     Dates: start: 20220729, end: 20220805
  6. GLYCOCOLL [Concomitant]
     Indication: Alanine aminotransferase increased
     Dosage: 50 MILLIGRAM
     Route: 048
     Dates: start: 20220729, end: 20220805
  7. METHIONINE [Concomitant]
     Active Substance: METHIONINE
     Indication: Alanine aminotransferase increased
     Dosage: 50 MILLIGRAM
     Route: 048
     Dates: start: 20220729, end: 20220805
  8. OPRELVEKIN [Concomitant]
     Active Substance: OPRELVEKIN
     Dosage: 1.0 MILLIGRAM
     Route: 058
     Dates: start: 20220831, end: 20220901
  9. ONDANSETRON HYDROCHLORIDE [Concomitant]
     Active Substance: ONDANSETRON HYDROCHLORIDE
     Dosage: 4 MILLIGRAM
     Route: 048
     Dates: start: 20220825, end: 20220825

REACTIONS (1)
  - Platelet count decreased [Recovered/Resolved]

NARRATIVE: CASE EVENT DATE: 20220831
